FAERS Safety Report 4628087-1 (Version None)
Quarter: 2005Q2

REPORT INFORMATION
  Report Type: 
  Country: None (occurrence: None)
  Receive Date: 20050401
  Receipt Date: 20050322
  Transmission Date: 20051028
  Serious: Yes (Death)
  Sender: FDA-Public Use
  Company Number: 000#8#2005-00256

PATIENT
  Age: 88 Year
  Sex: Male

DRUGS (4)
  1. NITROGLYCERIN [Suspect]
  2. ACEPROMAZINE + ACEPROMETAZINE + CLORAZEPATE (ACEPROMAZINE, ACEPROMETAZ [Suspect]
  3. BETAHISTINE (BETAHISTINE) [Suspect]
  4. TRIMETAZIDINE (TRIMETAZIDINE) [Suspect]

REACTIONS (3)
  - CONFUSIONAL STATE [None]
  - FALL [None]
  - HYPONATRAEMIA [None]
